FAERS Safety Report 10456277 (Version 1)
Quarter: 2014Q3

REPORT INFORMATION
  Report Type: Spontaneous
  Country: US (occurrence: None)
  Receive Date: 20140822
  Receipt Date: 20140822
  Transmission Date: 20150326
  Serious: Yes (Other)
  Sender: FDA-Public Use
  Company Number: 1000068744

PATIENT
  Age: 40 Year
  Sex: Female

DRUGS (4)
  1. CYMBALTA [Suspect]
     Active Substance: DULOXETINE HYDROCHLORIDE
     Indication: MAJOR DEPRESSION
     Dates: end: 201406
  2. VIMPAT(LACOSAMIDE)(LACOSAMIDE) [Concomitant]
  3. ONFI(CLOBAZAM)(CLOBAZAM) [Concomitant]
  4. FETZIMA [Suspect]
     Active Substance: LEVOMILNACIPRAN HYDROCHLORIDE
     Indication: MAJOR DEPRESSION
     Route: 048
     Dates: start: 20140609, end: 20140610

REACTIONS (4)
  - Asthenia [None]
  - Convulsion [None]
  - Dizziness [None]
  - Headache [None]

NARRATIVE: CASE EVENT DATE: 201406
